FAERS Safety Report 14324357 (Version 1)
Quarter: 2017Q4

REPORT INFORMATION
  Report Type: Spontaneous
  Country: GB (occurrence: GB)
  Receive Date: 20171226
  Receipt Date: 20171226
  Transmission Date: 20180321
  Serious: Yes (Disabling)
  Sender: FDA-Public Use
  Company Number: GB-GUERBET-GB-20170105

PATIENT
  Age: 63 Year

DRUGS (1)
  1. OPTIRAY [Suspect]
     Active Substance: IOVERSOL
     Indication: PRODUCT USED FOR UNKNOWN INDICATION
     Route: 040

REACTIONS (3)
  - Cardiac disorder [Unknown]
  - Cyanosis [Recovered/Resolved]
  - Hypotonia [Unknown]
